FAERS Safety Report 8367719-1 (Version None)
Quarter: 2012Q2

REPORT INFORMATION
  Report Type: 
  Country: None (occurrence: None)
  Receive Date: 20120517
  Receipt Date: 20120510
  Transmission Date: 20120825
  Serious: Yes (Hospitalization)
  Sender: FDA-Public Use
  Company Number: US-GLAXOSMITHKLINE-A0939965A

PATIENT
  Age: 52 Year
  Sex: Male

DRUGS (2)
  1. AVANDAMET [Suspect]
     Indication: DIABETES MELLITUS
     Route: 048
     Dates: start: 20031101, end: 20050301
  2. AVANDIA [Suspect]
     Indication: DIABETES MELLITUS
     Dosage: 8MG PER DAY
     Route: 048
     Dates: start: 20011101, end: 20051001

REACTIONS (5)
  - CARDIAC FAILURE CONGESTIVE [None]
  - FATIGUE [None]
  - OXYGEN SUPPLEMENTATION [None]
  - ASTHENIA [None]
  - DYSPNOEA [None]
